FAERS Safety Report 16531614 (Version 2)
Quarter: 2019Q4

REPORT INFORMATION
  Report Type: Spontaneous
  Country: US (occurrence: US)
  Receive Date: 20190705
  Receipt Date: 20191120
  Transmission Date: 20200122
  Serious: Yes (Other)
  Sender: FDA-Public Use
  Company Number: US-TAKEDA-2019TUS041576

PATIENT

DRUGS (13)
  1. ASPIRIN                            /00002701/ [Concomitant]
     Active Substance: ASPIRIN
  2. RANITIDINE. [Concomitant]
     Active Substance: RANITIDINE
  3. BUSPAR [Concomitant]
     Active Substance: BUSPIRONE HYDROCHLORIDE
     Indication: DEPRESSION
  4. DEXILANT [Suspect]
     Active Substance: DEXLANSOPRAZOLE
     Indication: GASTROOESOPHAGEAL REFLUX DISEASE
     Dosage: 60 MILLIGRAM, UNK
     Route: 048
     Dates: start: 20131105, end: 201606
  5. PROZAC [Concomitant]
     Active Substance: FLUOXETINE HYDROCHLORIDE
     Indication: DEPRESSION
  6. ZANTAC [Concomitant]
     Active Substance: RANITIDINE HYDROCHLORIDE
     Indication: GASTROOESOPHAGEAL REFLUX DISEASE
  7. DEXILANT [Suspect]
     Active Substance: DEXLANSOPRAZOLE
     Indication: COLITIS
  8. LOSARTAN. [Concomitant]
     Active Substance: LOSARTAN
     Indication: BLOOD PRESSURE ABNORMAL
  9. SYNTHROID [Concomitant]
     Active Substance: LEVOTHYROXINE SODIUM
     Indication: THYROID DISORDER
  10. TIZANIDINE. [Concomitant]
     Active Substance: TIZANIDINE
     Indication: SLEEP DISORDER
  11. WELLBUTRIN [Concomitant]
     Active Substance: BUPROPION HYDROCHLORIDE
     Indication: ANXIETY
  12. GABAPENTIN. [Concomitant]
     Active Substance: GABAPENTIN
     Indication: PAIN
  13. MIRALAX [Concomitant]
     Active Substance: POLYETHYLENE GLYCOL 3350
     Indication: CONSTIPATION

REACTIONS (1)
  - Chronic kidney disease [Not Recovered/Not Resolved]

NARRATIVE: CASE EVENT DATE: 20160308
